FAERS Safety Report 5401206-5 (Version None)
Quarter: 2007Q3

REPORT INFORMATION
  Report Type: 
  Country: None (occurrence: None)
  Receive Date: 20070731
  Receipt Date: 20070709
  Transmission Date: 20080115
  Serious: Yes (Hospitalization)
  Sender: FDA-Public Use
  Company Number: NO-ELI_LILLY_AND_COMPANY-NO200707002222

PATIENT
  Age: 48 Year
  Sex: Female

DRUGS (4)
  1. DULOXETINE HYDROCHLORIDE [Suspect]
     Indication: DEPRESSION
     Dosage: 60 MG, DAILY (1/D)
     Route: 048
     Dates: start: 20070301
  2. REDUCTIL [Concomitant]
     Indication: OBESITY
     Dosage: 15 MG, DAILY (1/D)
     Route: 048
  3. REDUCTIL [Concomitant]
     Dosage: 20 MG, DAILY (1/D)
     Route: 048
  4. REDUCTIL [Concomitant]
     Dosage: 10 MG, DAILY (1/D)
     Route: 048

REACTIONS (7)
  - CONVULSION [None]
  - DRUG INTERACTION [None]
  - NAUSEA [None]
  - PALPITATIONS [None]
  - PARAESTHESIA [None]
  - VISION BLURRED [None]
  - VISUAL DISTURBANCE [None]
